FAERS Safety Report 16140567 (Version 1)
Quarter: 2019Q2

REPORT INFORMATION
  Report Type: Spontaneous
  Country: US (occurrence: US)
  Receive Date: 20190329
  Receipt Date: 20190329
  Transmission Date: 20190711
  Serious: Yes (Life-Threatening, Other)
  Sender: FDA-Public Use
  Company Number: None

PATIENT
  Age: 77 Year
  Sex: Female
  Weight: 71 kg

DRUGS (15)
  1. ASPIRIN 81MG ONCE DAILY [Concomitant]
     Dates: start: 20190312, end: 20190317
  2. CARVEDILOL 3.125MG TWICE DAILY [Concomitant]
     Active Substance: CARVEDILOL
     Dates: start: 20190315, end: 20190318
  3. ONDANSETRON 4MG ONCE EVERY 6 HOURS [Concomitant]
     Dates: start: 20190311, end: 20190320
  4. PROTONIX 40MG WITH BEFORE BREAKFAST [Concomitant]
     Dates: start: 20190311, end: 20190317
  5. CLONAZEPAM 0.5 MG EVERY NIGHT AT BEDTIME AS NEEDED [Concomitant]
     Dates: start: 20190311, end: 20190320
  6. LEVOFLOXACIN 750MG EVERY 48 HOURS [Concomitant]
     Dates: start: 20190315, end: 20190316
  7. DULOXETINE 60MG EVERY NIGHT AT BEDTIME [Concomitant]
     Dates: start: 20190311, end: 20190320
  8. METHYLPREDNISOLONE 40MG EVERY 12 HOURS [Concomitant]
     Dates: start: 20190314, end: 20190316
  9. ELIQUIS [Suspect]
     Active Substance: APIXABAN
     Indication: ATRIAL FIBRILLATION
     Route: 048
     Dates: start: 20190312, end: 20190316
  10. CARVEDILOL 3.125MG TWICE DAILY [Concomitant]
     Active Substance: CARVEDILOL
     Dates: start: 20190312, end: 20190313
  11. FERROUS SULFATE 325MG TWICE DAILY WITH A MEAL [Concomitant]
     Dates: start: 20190311, end: 20190320
  12. FUROSEMIDE 20MG DAILY [Concomitant]
     Dates: start: 20190312, end: 20190314
  13. LEVOTHYROXINE 88MCG [Concomitant]
     Active Substance: LEVOTHYROXINE
     Dates: start: 20190313, end: 20190320
  14. MIRTAZAPINE 30MG EVERY NIGHT AT BEDTIME [Concomitant]
     Dates: start: 20190311, end: 20190320
  15. CARVEDILOL 6.25MG TWICE DAILY [Concomitant]
     Dates: start: 20190313, end: 20190315

REACTIONS (1)
  - Abdominal wall haematoma [None]

NARRATIVE: CASE EVENT DATE: 20190316
